FAERS Safety Report 22889945 (Version 3)
Quarter: 2023Q4

REPORT INFORMATION
  Report Type: Report from Study
  Country: GB (occurrence: GB)
  Receive Date: 20230831
  Receipt Date: 20231031
  Transmission Date: 20240109
  Serious: Yes (Disabling)
  Sender: FDA-Public Use
  Company Number: GB-PFIZER INC-202300003906

PATIENT
  Age: 59 Year
  Sex: Male
  Weight: 91.7 kg

DRUGS (1)
  1. ELRANATAMAB [Suspect]
     Active Substance: ELRANATAMAB
     Indication: Plasma cell myeloma
     Dosage: 116 MG, EVERY 2 WEEKS
     Route: 058
     Dates: start: 20220505, end: 20220914

REACTIONS (1)
  - Optic atrophy [Recovered/Resolved]

NARRATIVE: CASE EVENT DATE: 20221229
